FAERS Safety Report 11500137 (Version 1)
Quarter: 2015Q3

REPORT INFORMATION
  Report Type: Spontaneous
  Country: US (occurrence: None)
  Receive Date: 20150911
  Receipt Date: 20150911
  Transmission Date: 20151125
  Serious: Yes (Hospitalization)
  Sender: FDA-Public Use
  Company Number: None

PATIENT
  Age: 79 Year
  Sex: Male

DRUGS (1)
  1. EXJADE [Suspect]
     Active Substance: DEFERASIROX
     Indication: IRON OVERLOAD
     Dosage: 500 MG 2 QD ORAL
     Route: 048

REACTIONS (3)
  - Abdominal discomfort [None]
  - Diarrhoea [None]
  - Hepatic function abnormal [None]

NARRATIVE: CASE EVENT DATE: 20150820
